FAERS Safety Report 14535214 (Version 1)
Quarter: 2018Q1

REPORT INFORMATION
  Report Type: Spontaneous
  Country: US (occurrence: US)
  Receive Date: 20180214
  Receipt Date: 20180214
  Transmission Date: 20180509
  Serious: No
  Sender: FDA-Public Use
  Company Number: None

PATIENT
  Age: 80 Year
  Sex: Female

DRUGS (22)
  1. GLEEVEC [Suspect]
     Active Substance: IMATINIB MESYLATE
     Indication: GASTROINTESTINAL STROMAL TUMOUR
     Route: 048
     Dates: start: 20170112, end: 20180214
  2. ACLOVATE CREAM [Concomitant]
  3. FOSAMAX [Concomitant]
     Active Substance: ALENDRONATE SODIUM
  4. MILK OF MAGNESIA [Concomitant]
     Active Substance: MAGNESIUM HYDROXIDE
  5. VITAMIN B12 [Concomitant]
     Active Substance: CYANOCOBALAMIN
  6. FLONASE [Concomitant]
     Active Substance: FLUTICASONE PROPIONATE
  7. FLAGYL [Concomitant]
     Active Substance: METRONIDAZOLE\METRONIDAZOLE HYDROCHLORIDE
  8. CRANBERRY SUPPLEMENT [Concomitant]
  9. METOPROLOL. [Concomitant]
     Active Substance: METOPROLOL
  10. VITAMIN C [Concomitant]
     Active Substance: ASCORBIC ACID
  11. ASPIRIN. [Concomitant]
     Active Substance: ASPIRIN
  12. CRESTOR [Concomitant]
     Active Substance: ROSUVASTATIN CALCIUM
  13. FISH OIL [Concomitant]
     Active Substance: FISH OIL
  14. ZINC. [Concomitant]
     Active Substance: ZINC
  15. CENTRUM SILVER [Concomitant]
     Active Substance: MINERALS\VITAMINS
  16. CALCIUM [Concomitant]
     Active Substance: CALCIUM
  17. XANAX [Concomitant]
     Active Substance: ALPRAZOLAM
  18. GAVISCON [Concomitant]
     Active Substance: ALUMINUM HYDROXIDE\MAGNESIUM CARBONATE
  19. DYAZIDE [Concomitant]
     Active Substance: HYDROCHLOROTHIAZIDE\TRIAMTERENE
  20. NEXIUM [Concomitant]
     Active Substance: ESOMEPRAZOLE MAGNESIUM
  21. CIPRO [Concomitant]
     Active Substance: CIPROFLOXACIN HYDROCHLORIDE
  22. KLONOPIN [Concomitant]
     Active Substance: CLONAZEPAM

REACTIONS (2)
  - Food interaction [None]
  - Urinary tract infection [None]

NARRATIVE: CASE EVENT DATE: 20180214
